FAERS Safety Report 8549868-8 (Version None)
Quarter: 2012Q3

REPORT INFORMATION
  Report Type: 
  Country: None (occurrence: None)
  Receive Date: 20120730
  Receipt Date: 20110930
  Transmission Date: 20120928
  Serious: No
  Sender: FDA-Public Use
  Company Number: US-GLAXOSMITHKLINE-A0947198A

PATIENT
  Sex: Female
  Weight: 68.2 kg

DRUGS (7)
  1. DIHYDROERGOTAMINE MESYLATE [Concomitant]
     Dosage: 1ML AS REQUIRED
  2. PIROXICAM [Suspect]
     Route: 065
  3. AMBIEN [Suspect]
     Indication: SLEEP DISORDER
     Route: 048
  4. VITAMIN D [Concomitant]
  5. CARISOPRODOL [Concomitant]
     Indication: MUSCLE SPASMS
  6. IMITREX [Suspect]
     Indication: HEADACHE
     Route: 048
  7. XANAX [Suspect]
     Indication: INSOMNIA
     Dosage: 2MG PER DAY
     Route: 048

REACTIONS (9)
  - STRESS [None]
  - PAIN [None]
  - EYE PAIN [None]
  - WEIGHT INCREASED [None]
  - GASTROINTESTINAL DISORDER [None]
  - BLOOD GLUCOSE FLUCTUATION [None]
  - DRUG INEFFECTIVE [None]
  - DRY EYE [None]
  - IRRITABLE BOWEL SYNDROME [None]
